FAERS Safety Report 9260420 (Version 1)
Quarter: 2013Q2

REPORT INFORMATION
  Report Type: Spontaneous
  Country: US (occurrence: US)
  Receive Date: 20130429
  Receipt Date: 20130429
  Transmission Date: 20140414
  Serious: Yes (Hospitalization)
  Sender: FDA-Public Use
  Company Number: US-SHIRE-ALL1-2013-02498

PATIENT
  Age: 38 Year
  Sex: Female
  Weight: 151.93 kg

DRUGS (8)
  1. FIRAZYR [Suspect]
     Indication: ANGIOEDEMA
     Dosage: 30 MG, AS REQ^D
     Route: 058
     Dates: start: 201209
  2. PREDNISONE [Concomitant]
     Indication: URTICARIA
     Dosage: UNK, UNKNOWN
     Route: 065
  3. ZOLOF [Concomitant]
     Indication: ANXIETY
     Dosage: UNK, UNKNOWN
     Route: 065
  4. OXYCODONE [Concomitant]
     Indication: PAIN
     Dosage: UNK, UNKNOWN
     Route: 065
  5. EPINEPHRINE                        /00003902/ [Concomitant]
     Indication: ANGIOEDEMA
     Dosage: UNK, UNKNOWN
     Route: 065
  6. VALIUM                             /00017001/ [Concomitant]
     Indication: ANXIETY
     Dosage: UNK, 1X/DAY:QD
     Route: 065
  7. XOLAIR [Concomitant]
     Indication: URTICARIA
     Dosage: UNK, UNKNOWN
     Route: 065
  8. XOLAIR [Concomitant]
     Indication: ANGIOEDEMA

REACTIONS (4)
  - Gastrointestinal haemorrhage [Not Recovered/Not Resolved]
  - Clostridium difficile infection [Recovered/Resolved]
  - Rectal ulcer [Unknown]
  - Off label use [Not Recovered/Not Resolved]
